FAERS Safety Report 9322219 (Version 1)
Quarter: 2013Q2

REPORT INFORMATION
  Report Type: Spontaneous
  Country: CA (occurrence: CA)
  Receive Date: 20130531
  Receipt Date: 20130531
  Transmission Date: 20140414
  Serious: Yes (Disabling)
  Sender: FDA-Public Use
  Company Number: CA-JNJFOC-20130515159

PATIENT
  Age: 8 Year
  Sex: Male

DRUGS (2)
  1. INFANTS TYLENOL SUSPENSION [Suspect]
     Indication: PRODUCT USED FOR UNKNOWN INDICATION
     Route: 048
  2. PREVNAR VACCINE [Suspect]
     Indication: PRODUCT USED FOR UNKNOWN INDICATION
     Dosage: PREVNAR SINGLE DOSE PREFILLED SYRINGES AND VIALS, SUSPENSION INTRAMUSCULAR
     Route: 051

REACTIONS (1)
  - Autism [Not Recovered/Not Resolved]
